FAERS Safety Report 9339111 (Version 2)
Quarter: 2013Q2

REPORT INFORMATION
  Report Type: Spontaneous
  Country: JP (occurrence: JP)
  Receive Date: 20130610
  Receipt Date: 20130625
  Transmission Date: 20140414
  Serious: Yes (Other)
  Sender: FDA-Public Use
  Company Number: JP-RANBAXY-2013RR-68295

PATIENT
  Age: 52 Year
  Sex: Male

DRUGS (15)
  1. PREDNISOLONE [Suspect]
     Indication: GASTROENTERITIS EOSINOPHILIC
     Dosage: 6 MG/DAY
     Route: 048
  2. PREDNISOLONE [Suspect]
     Indication: GASTROENTERITIS EOSINOPHILIC
     Dosage: 5 MG/DAY
     Route: 048
  3. PREDNISOLONE [Suspect]
     Indication: GASTROENTERITIS EOSINOPHILIC
     Dosage: 3 MG/DAY
     Route: 048
  4. PREDNISOLONE [Suspect]
     Indication: GASTROENTERITIS EOSINOPHILIC
     Dosage: 20 MG/DAY
     Route: 048
  5. PREDNISOLONE [Suspect]
     Dosage: 15 MG/DAY
     Route: 065
  6. PREDNISOLONE [Suspect]
     Dosage: 10 MG/DAY
     Route: 065
  7. PREDNISOLONE [Concomitant]
     Indication: GASTROENTERITIS EOSINOPHILIC
     Dosage: 5 MG/DAY
     Route: 048
  8. PREDNISOLONE [Concomitant]
     Indication: GASTROENTERITIS EOSINOPHILIC
     Dosage: 5 MG/DAY
     Route: 048
  9. PREDNISOLONE [Concomitant]
     Indication: GASTROENTERITIS EOSINOPHILIC
     Dosage: 4 MG/DAY
     Route: 048
  10. PREDNISOLONE [Suspect]
     Indication: GASTROENTERITIS EOSINOPHILIC
     Dosage: 40 MG/DAY
     Route: 048
  11. PREDNISOLONE [Suspect]
     Dosage: 20 MG/DAY
     Route: 065
  12. PREDNISOLONE [Suspect]
     Indication: GASTROENTERITIS EOSINOPHILIC
     Dosage: 5 MG/DAY
     Route: 048
  13. CLARITHROMYCIN [Suspect]
     Indication: GASTROENTERITIS EOSINOPHILIC
     Dosage: 800 MG/DAY
     Route: 048
  14. CLARITHROMYCIN [Suspect]
     Indication: GASTROENTERITIS EOSINOPHILIC
     Dosage: 600 MG/DAY
     Route: 048
  15. CLARITHROMYCIN [Suspect]
     Indication: GASTROENTERITIS EOSINOPHILIC
     Dosage: 400 MG/DAY
     Route: 048

REACTIONS (2)
  - Hyperglycaemia [Recovered/Resolved]
  - Diarrhoea [Unknown]
